FAERS Safety Report 14588772 (Version 1)
Quarter: 2018Q1

REPORT INFORMATION
  Report Type: Spontaneous
  Country: IN (occurrence: IN)
  Receive Date: 20180301
  Receipt Date: 20180301
  Transmission Date: 20180509
  Serious: Yes (Other)
  Sender: FDA-Public Use
  Company Number: IN-GLAXOSMITHKLINE-IN2018031713

PATIENT
  Age: 26 Year
  Sex: Male

DRUGS (1)
  1. TERBINAFINE. [Suspect]
     Active Substance: TERBINAFINE
     Indication: BODY TINEA
     Dosage: 250 MG, UNK
     Route: 065

REACTIONS (1)
  - Drug-induced liver injury [Recovering/Resolving]
